FAERS Safety Report 11878968 (Version 1)
Quarter: 2015Q4

REPORT INFORMATION
  Report Type: Spontaneous
  Country: FR (occurrence: FR)
  Receive Date: 20151230
  Receipt Date: 20151230
  Transmission Date: 20160305
  Serious: Yes (Hospitalization)
  Sender: FDA-Public Use
  Company Number: PHHY2015FR168884

PATIENT
  Age: 79 Year
  Sex: Female

DRUGS (12)
  1. INEXIUM//ESOMEPRAZOLE SODIUM [Concomitant]
     Active Substance: ESOMEPRAZOLE SODIUM
     Indication: PRODUCT USED FOR UNKNOWN INDICATION
     Dosage: 20 MG, QD
     Route: 065
  2. PREVISON [Suspect]
     Active Substance: MESTRANOL\NORETHYNODREL
     Indication: PRODUCT USED FOR UNKNOWN INDICATION
     Dosage: 20 MG,(0.5 DF) QD
     Route: 048
     Dates: start: 2002, end: 20150924
  3. ZYMAD [Concomitant]
     Active Substance: CHOLECALCIFEROL
     Indication: PRODUCT USED FOR UNKNOWN INDICATION
     Dosage: 1 DF, EVERY 3 MONTHS
     Route: 065
  4. ZAMUDOL [Concomitant]
     Active Substance: TRAMADOL HYDROCHLORIDE
     Indication: PAIN
     Dosage: UNK UNK, PRN
     Route: 065
  5. FEMARA [Suspect]
     Active Substance: LETROZOLE
  6. COAPROVEL [Concomitant]
     Active Substance: HYDROCHLOROTHIAZIDE\IRBESARTAN
     Indication: PRODUCT USED FOR UNKNOWN INDICATION
     Dosage: 300 MG/12.5MGUNK
     Route: 065
  7. FEMARA [Suspect]
     Active Substance: LETROZOLE
     Indication: PRODUCT USED FOR UNKNOWN INDICATION
     Dosage: 2.5 MG, QD
     Route: 048
     Dates: end: 20150924
  8. PREVISON [Suspect]
     Active Substance: MESTRANOL\NORETHYNODREL
  9. MONICOR [Concomitant]
     Active Substance: ISOSORBIDE MONONITRATE
     Indication: PRODUCT USED FOR UNKNOWN INDICATION
     Dosage: 20 MG, QD (2 DF, DAILY)
     Route: 065
  10. LEVOTHYROX [Concomitant]
     Active Substance: LEVOTHYROXINE
     Dosage: 100 UNK, UNK
     Route: 065
     Dates: start: 20150925
  11. INEXIUM//ESOMEPRAZOLE SODIUM [Concomitant]
     Active Substance: ESOMEPRAZOLE SODIUM
     Dosage: 8 MG/H, UNK
     Route: 042
     Dates: start: 20150928
  12. LEVOTHYROX [Concomitant]
     Active Substance: LEVOTHYROXINE
     Indication: PRODUCT USED FOR UNKNOWN INDICATION
     Dosage: 75 UG, QD
     Route: 065
     Dates: end: 20150925

REACTIONS (14)
  - PCO2 decreased [None]
  - Haematoma [Recovered/Resolved]
  - Platelet count increased [None]
  - Dyspnoea [None]
  - Diverticulum [None]
  - Anaemia [Recovered/Resolved]
  - Normochromic normocytic anaemia [None]
  - International normalised ratio increased [None]
  - Melaena [Recovered/Resolved]
  - Blood bicarbonate decreased [None]
  - Hypoprothrombinaemia [Recovered/Resolved]
  - Oedema peripheral [None]
  - Hypogammaglobulinaemia [None]
  - Light chain analysis increased [None]

NARRATIVE: CASE EVENT DATE: 20150924
